FAERS Safety Report 19725600 (Version 1)
Quarter: 2021Q3

REPORT INFORMATION
  Report Type: Spontaneous
  Country: US (occurrence: US)
  Receive Date: 20210819
  Receipt Date: 20210819
  Transmission Date: 20211014
  Serious: No
  Sender: FDA-Public Use
  Company Number: US-THERAPEUTICSMD-2021TMD01697

PATIENT
  Age: 59 Year
  Sex: Female
  Weight: 135.6 kg

DRUGS (4)
  1. 2 THYROID MEDICATIONS [Concomitant]
  2. BIJUVA [Suspect]
     Active Substance: ESTRADIOL\PROGESTERONE
     Indication: POSTMENOPAUSE
     Dosage: 1 CAPSULES, 1X/DAY EACH EVENING
     Route: 048
     Dates: start: 20210506
  3. XARELTO [Concomitant]
     Active Substance: RIVAROXABAN
  4. UNSPECIFIED BLOOD THINNER [Concomitant]
     Active Substance: UNSPECIFIED INGREDIENT
     Indication: ATRIAL FIBRILLATION

REACTIONS (4)
  - Fatigue [Not Recovered/Not Resolved]
  - Decreased appetite [Not Recovered/Not Resolved]
  - Muscle spasms [Not Recovered/Not Resolved]
  - Hot flush [Unknown]

NARRATIVE: CASE EVENT DATE: 20210506
